FAERS Safety Report 10715645 (Version 1)
Quarter: 2015Q1

REPORT INFORMATION
  Report Type: Spontaneous
  Country: US (occurrence: None)
  Receive Date: 20150105
  Receipt Date: 20150105
  Transmission Date: 20150721
  Serious: Yes (Other)
  Sender: FDA-Public Use
  Company Number: 2013AP009272

PATIENT
  Sex: Female

DRUGS (1)
  1. GLIPIZIDE (GLIPIZIDE) TABLET [Suspect]
     Active Substance: GLIPIZIDE

REACTIONS (1)
  - Hypersensitivity [None]
